FAERS Safety Report 6026400-4 (Version None)
Quarter: 2009Q1

REPORT INFORMATION
  Report Type: 
  Country: None (occurrence: None)
  Receive Date: 20090102
  Receipt Date: 20081229
  Transmission Date: 20090719
  Serious: Yes (Life-Threatening)
  Sender: FDA-Public Use
  Company Number: PHHY2008BR33533

PATIENT
  Sex: Female
  Weight: 72 kg

DRUGS (5)
  1. TEGRETOL [Suspect]
     Indication: NERVOUS SYSTEM DISORDER
     Dosage: 1 DF, QHS
     Route: 048
     Dates: start: 20081222
  2. ATORVASTATIN CALCIUM [Concomitant]
     Indication: BLOOD CHOLESTEROL INCREASED
     Dosage: 10 MG, QHS
     Route: 048
  3. ATORVASTATIN CALCIUM [Concomitant]
     Indication: BLOOD TRIGLYCERIDES INCREASED
  4. CALCIUM [Concomitant]
     Indication: OSTEOPOROSIS
     Dosage: 3 TABS DAILY
     Route: 048
  5. CALCIUM [Concomitant]
     Indication: ARTHRITIS

REACTIONS (14)
  - ANXIETY [None]
  - BLOOD PRESSURE INCREASED [None]
  - DIZZINESS [None]
  - DYSPNOEA [None]
  - DYSURIA [None]
  - EATING DISORDER [None]
  - FOAMING AT MOUTH [None]
  - HEADACHE [None]
  - INSOMNIA [None]
  - NAUSEA [None]
  - PARAESTHESIA [None]
  - POLLAKIURIA [None]
  - PYREXIA [None]
  - THROAT IRRITATION [None]
